FAERS Safety Report 9916103 (Version 3)
Quarter: 2014Q1

REPORT INFORMATION
  Report Type: Spontaneous
  Country: ES (occurrence: ES)
  Receive Date: 20140221
  Receipt Date: 20140327
  Transmission Date: 20141002
  Serious: Yes (Hospitalization)
  Sender: FDA-Public Use
  Company Number: ES-BRISTOL-MYERS SQUIBB COMPANY-20180980

PATIENT
  Age: 62 Year
  Sex: Male

DRUGS (6)
  1. CETUXIMAB [Suspect]
     Indication: LARYNGEAL SQUAMOUS CELL CARCINOMA
     Dates: start: 20140124, end: 20140124
  2. ENALAPRIL [Concomitant]
  3. BISOPROLOL [Concomitant]
  4. CALCIUM [Concomitant]
  5. HIDROFEROL [Concomitant]
     Dosage: 1 DF : 1 AMPOULE
  6. RANITIDINE [Concomitant]

REACTIONS (1)
  - Meningitis aseptic [Recovered/Resolved]
